FAERS Safety Report 21890035 (Version 1)
Quarter: 2023Q1

REPORT INFORMATION
  Report Type: Spontaneous
  Country: US (occurrence: US)
  Receive Date: 20230120
  Receipt Date: 20230120
  Transmission Date: 20230417
  Serious: No
  Sender: FDA-Public Use
  Company Number: US-PFIZER INC-PV202300011404

PATIENT
  Age: 74 Year
  Sex: Male

DRUGS (1)
  1. INLYTA [Suspect]
     Active Substance: AXITINIB
     Dosage: UNK

REACTIONS (7)
  - Dry skin [Unknown]
  - Pain in extremity [Unknown]
  - Joint stiffness [Unknown]
  - Plantar fasciitis [Unknown]
  - Glossodynia [Unknown]
  - Diarrhoea [Unknown]
  - Dysphonia [Unknown]
